FAERS Safety Report 5620139-2 (Version None)
Quarter: 2008Q1

REPORT INFORMATION
  Report Type: 
  Country: None (occurrence: None)
  Receive Date: 20080208
  Receipt Date: 20080128
  Transmission Date: 20080703
  Serious: Yes (Other)
  Sender: FDA-Public Use
  Company Number: US-ELI_LILLY_AND_COMPANY-US200801005932

PATIENT
  Sex: Female

DRUGS (10)
  1. FORTEO [Suspect]
     Indication: OSTEOPOROSIS
     Dates: end: 20080123
  2. FORTEO [Suspect]
     Dates: start: 20080128
  3. ULTRAM [Concomitant]
     Dosage: 200 MG, EACH MORNING
  4. SEROQUEL [Concomitant]
     Dosage: 25 MG, 2/D
  5. OYSTER SHELL CALCIUM WITH VITAMIN D/01675501/ [Concomitant]
     Dosage: UNK, UNK
  6. LEXAPRO [Concomitant]
     Dosage: 5 MG, UNK
  7. NAMENDA [Concomitant]
     Dosage: 10 MG, UNK
  8. ATENOLOL [Concomitant]
     Dosage: 25 MG, UNK
  9. MIRTAZAPINE [Concomitant]
     Dosage: 7.5 MG, UNK
  10. EXELON [Concomitant]
     Dosage: 4.6 MG, UNK

REACTIONS (2)
  - CEREBROVASCULAR ACCIDENT [None]
  - DEMENTIA [None]
